FAERS Safety Report 16336945 (Version 3)
Quarter: 2019Q2

REPORT INFORMATION
  Report Type: Report from Study
  Country: US (occurrence: US)
  Receive Date: 20190521
  Receipt Date: 20190618
  Transmission Date: 20190711
  Serious: Yes (Hospitalization, Other)
  Sender: FDA-Public Use
  Company Number: US-GILEAD-2019-0400451

PATIENT
  Age: 30 Year
  Sex: Female

DRUGS (7)
  1. ELIQUIS [Concomitant]
     Active Substance: APIXABAN
  2. OXYCODONE [Concomitant]
     Active Substance: OXYCODONE
  3. ADCIRCA [Concomitant]
     Active Substance: TADALAFIL
  4. EPOPROSTENOL. [Concomitant]
     Active Substance: EPOPROSTENOL
  5. AMBRISENTAN [Suspect]
     Active Substance: AMBRISENTAN
     Indication: PULMONARY ARTERIAL HYPERTENSION
     Dosage: 5 MG, QD
     Route: 048
     Dates: start: 20140815
  6. AMBRISENTAN [Suspect]
     Active Substance: AMBRISENTAN
     Dosage: 10 UNK
     Route: 065
     Dates: start: 20140914
  7. REMODULIN [Concomitant]
     Active Substance: TREPROSTINIL

REACTIONS (11)
  - Fluid retention [Unknown]
  - Migraine [Unknown]
  - Anxiety [Not Recovered/Not Resolved]
  - Vascular device infection [Unknown]
  - Infusion site discharge [Not Recovered/Not Resolved]
  - Fluid overload [Not Recovered/Not Resolved]
  - Pyrexia [Unknown]
  - Infusion site swelling [Not Recovered/Not Resolved]
  - Pyrexia [Not Recovered/Not Resolved]
  - Infusion site erythema [Not Recovered/Not Resolved]
  - Vascular device infection [Not Recovered/Not Resolved]

NARRATIVE: CASE EVENT DATE: 20190421
